FAERS Safety Report 7211032-2 (Version None)
Quarter: 2010Q4

REPORT INFORMATION
  Report Type: 
  Country: None (occurrence: None)
  Receive Date: 20101223
  Receipt Date: 20101213
  Transmission Date: 20110411
  Serious: Yes (Other)
  Sender: FDA-Public Use
  Company Number: 783038

PATIENT
  Age: 43 Year
  Sex: Female

DRUGS (3)
  1. PIPERACILLIN AND TAZOBACTAM [Suspect]
     Indication: COLITIS ULCERATIVE
     Dosage: 4.5 G GRAM(S), INTRAVENOUS DRIP
     Route: 041
  2. (METAMIZOLE) [Concomitant]
  3. (PARACETAMOL) [Concomitant]

REACTIONS (1)
  - DRUG RASH WITH EOSINOPHILIA AND SYSTEMIC SYMPTOMS [None]
